FAERS Safety Report 14579163 (Version 1)
Quarter: 2018Q1

REPORT INFORMATION
  Report Type: Report from Study
  Country: IT (occurrence: IT)
  Receive Date: 20180227
  Receipt Date: 20180227
  Transmission Date: 20180509
  Serious: Yes (Hospitalization)
  Sender: FDA-Public Use
  Company Number: IT-TEVA-2018-IT-860494

PATIENT
  Age: 47 Year
  Sex: Female

DRUGS (4)
  1. HALOPERIDOL. [Concomitant]
     Active Substance: HALOPERIDOL
  2. DEPAKIN 500 MG COMPRESSE GASTRORESISTENTI [Concomitant]
  3. CARBOLITHIUM 300 MG CAPSULE RIGIDE [Suspect]
     Active Substance: LITHIUM CARBONATE
     Indication: SCHIZOPHRENIA
     Route: 048
  4. HALDOL DECANOAS 50 MG/ML SOLUZIONE INIETTABILE [Concomitant]

REACTIONS (6)
  - Electrocardiogram abnormal [Recovered/Resolved]
  - Extrapyramidal disorder [Recovered/Resolved]
  - Poisoning [Recovered/Resolved]
  - Pupils unequal [Recovered/Resolved]
  - Nystagmus [Recovered/Resolved]
  - Dysarthria [Recovered/Resolved]

NARRATIVE: CASE EVENT DATE: 20171205
